FAERS Safety Report 5899514-7 (Version None)
Quarter: 2008Q3

REPORT INFORMATION
  Report Type: 
  Country: None (occurrence: None)
  Receive Date: 20080926
  Receipt Date: 20080917
  Transmission Date: 20090109
  Serious: Yes (Hospitalization)
  Sender: FDA-Public Use
  Company Number: CA-JNJFOC-20080404649

PATIENT
  Sex: Male
  Weight: 67 kg

DRUGS (4)
  1. REMICADE [Suspect]
     Route: 042
  2. REMICADE [Suspect]
     Dosage: 17TH INFUSION
     Route: 042
  3. REMICADE [Suspect]
     Indication: ANKYLOSING SPONDYLITIS
     Dosage: 16 INFUSIONS
     Route: 042
  4. DICLOFENAC [Suspect]
     Indication: PAIN
     Route: 048

REACTIONS (2)
  - GRANULOMATOUS LIVER DISEASE [None]
  - LIPASE INCREASED [None]
